FAERS Safety Report 8604804-0 (Version None)
Quarter: 2012Q3

REPORT INFORMATION
  Report Type: 
  Country: None (occurrence: None)
  Receive Date: 20120808
  Receipt Date: 20120808
  Transmission Date: 20120928
  Serious: Yes (Hospitalization)
  Sender: FDA-Public Use
  Company Number: None

PATIENT
  Sex: Female

DRUGS (1)
  1. REVATIO [Suspect]
     Dosage: 20 MG TID ORAL
     Route: 048
     Dates: start: 20110803

REACTIONS (2)
  - CHEST PAIN [None]
  - FLUID OVERLOAD [None]
